FAERS Safety Report 24857811 (Version 2)
Quarter: 2025Q1

REPORT INFORMATION
  Report Type: Spontaneous
  Country: US (occurrence: US)
  Receive Date: 20250117
  Receipt Date: 20250121
  Transmission Date: 20250408
  Serious: Yes (Death, Hospitalization, Other)
  Sender: Kenvue
  Company Number: US-KENVUE CANADA INC.-20250103753

PATIENT
  Age: 13 Year
  Sex: Male

DRUGS (1)
  1. DIPHENHYDRAMINE HYDROCHLORIDE [Suspect]
     Active Substance: DIPHENHYDRAMINE HYDROCHLORIDE
     Indication: Product used for unknown indication
     Route: 048

REACTIONS (19)
  - Intentional product misuse [Fatal]
  - Cyanosis [Fatal]
  - Seizure [Fatal]
  - Cardiac arrest [Fatal]
  - Blood glucose increased [Fatal]
  - PCO2 increased [Fatal]
  - Blood lactic acid increased [Fatal]
  - Aspartate aminotransferase increased [Fatal]
  - Alanine aminotransferase increased [Fatal]
  - Blood creatine phosphokinase increased [Fatal]
  - Anion gap increased [Fatal]
  - Electrocardiogram QRS complex prolonged [Fatal]
  - Brain oedema [Fatal]
  - Brain herniation [Fatal]
  - Ventricular tachycardia [Fatal]
  - Ventricular fibrillation [Fatal]
  - Torsade de pointes [Fatal]
  - Brain death [Fatal]
  - Intentional overdose [Fatal]
